FAERS Safety Report 4689096-X (Version None)
Quarter: 2005Q2

REPORT INFORMATION
  Report Type: 
  Country: None (occurrence: None)
  Receive Date: 20050613
  Receipt Date: 20050207
  Transmission Date: 20051028
  Serious: Yes (Other)
  Sender: FDA-Public Use
  Company Number: PHEH2005US01818

PATIENT
  Age: 51 Year
  Sex: Female

DRUGS (11)
  1. ZOMETA [Suspect]
     Indication: PAIN IN JAW
     Dosage: 4MG Q6WK
     Dates: start: 20011101, end: 20040701
  2. ZOMETA [Suspect]
     Dosage: 4MG Q4WK
     Dates: start: 20050105, end: 20050216
  3. AREDIA [Suspect]
     Dates: start: 20001019, end: 20011001
  4. ACTIQ [Suspect]
     Indication: PAIN
     Dosage: 600MCG BID
     Dates: start: 20010907
  5. ACTIQ [Suspect]
     Dosage: 600MCG TID
     Dates: start: 20011228
  6. ACTIQ [Suspect]
     Dosage: 800MCG TID
     Dates: start: 20020118
  7. ACTIQ [Suspect]
     Dosage: 800MCG Q6H
     Dates: start: 20020215
  8. ACTIQ [Suspect]
     Dosage: 1200MCG QID
     Dates: start: 20020315
  9. ACTIQ [Suspect]
     Dosage: 1200MCG Q4H
     Dates: start: 20030625
  10. DECADRON [Concomitant]
     Dosage: 4MG QWEEK
     Route: 042
     Dates: end: 20050216
  11. DECADRON [Concomitant]
     Dosage: 10MG Q3WK PRN

REACTIONS (4)
  - BONE DISORDER [None]
  - DENTAL CARIES [None]
  - OSTEONECROSIS [None]
  - TOOTH EXTRACTION [None]
